FAERS Safety Report 8313244-3 (Version None)
Quarter: 2012Q2

REPORT INFORMATION
  Report Type: 
  Country: None (occurrence: None)
  Receive Date: 20120424
  Receipt Date: 20120411
  Transmission Date: 20120825
  Serious: Yes (Other)
  Sender: FDA-Public Use
  Company Number: 2012FO001063

PATIENT
  Age: 64 Year
  Sex: Male

DRUGS (1)
  1. SOLARAZE [Suspect]
     Indication: ACTINIC KERATOSIS
     Dosage: ;BID;TOP
     Route: 061
     Dates: start: 20120111, end: 20120207

REACTIONS (2)
  - APPLICATION SITE EXFOLIATION [None]
  - APPLICATION SITE ERYTHEMA [None]
